FAERS Safety Report 9286766 (Version 1)
Quarter: 2013Q2

REPORT INFORMATION
  Report Type: Spontaneous
  Country: GB (occurrence: GB)
  Receive Date: 20130513
  Receipt Date: 20130513
  Transmission Date: 20140414
  Serious: Yes (Life-Threatening, Hospitalization, Other)
  Sender: FDA-Public Use
  Company Number: GB-B.I. PHARMACEUTICALS,INC./RIDGEFIELD-2013-UK-01089UK

PATIENT
  Age: 75 Year
  Sex: Male

DRUGS (10)
  1. PRADAXA [Suspect]
     Dosage: 220 MG
     Route: 048
     Dates: start: 20121130, end: 20130318
  2. BISOPROLOL [Concomitant]
  3. CODEINE PHOSPHATE [Concomitant]
  4. FUROSEMIDE [Concomitant]
  5. HUMULIN S [Concomitant]
  6. IRBESARTAN [Concomitant]
  7. LANSOPRAZOLE [Concomitant]
  8. MANEVAC [Concomitant]
  9. PARACETAMOL [Concomitant]
  10. SIMVASTATIN [Concomitant]

REACTIONS (8)
  - Blood urine present [Recovered/Resolved]
  - Diabetes mellitus inadequate control [Recovered/Resolved]
  - Diarrhoea [Recovered/Resolved]
  - Epistaxis [Recovered/Resolved]
  - Dry mouth [Recovered/Resolved]
  - Feeling cold [Recovered/Resolved]
  - Muscle spasms [Recovered/Resolved]
  - Rash pruritic [Recovered/Resolved]
